FAERS Safety Report 9958065 (Version 2)
Quarter: 2014Q1

REPORT INFORMATION
  Report Type: Report from Study
  Country: US (occurrence: US)
  Receive Date: 20140304
  Receipt Date: 20140304
  Transmission Date: 20141002
  Serious: No
  Sender: FDA-Public Use
  Company Number: US-ABBVIE-13P-163-1075259-00

PATIENT
  Sex: Female

DRUGS (11)
  1. HUMIRA [Suspect]
     Indication: RHEUMATOID ARTHRITIS
     Dates: start: 20121127, end: 20130414
  2. ARAVA [Concomitant]
     Indication: RHEUMATOID ARTHRITIS
     Dosage: EVERY NIGHT
  3. CLONAZEPAM [Concomitant]
     Indication: INSOMNIA
     Dosage: AT NIGHT
     Route: 048
  4. PRISTIQ [Concomitant]
     Indication: DEPRESSION
     Route: 048
  5. LEVOTHYROXINE [Concomitant]
     Indication: HYPOTHYROIDISM
     Route: 048
  6. PILOCARPINE [Concomitant]
     Indication: DRY EYE
  7. PILOCARPINE [Concomitant]
     Indication: DRY MOUTH
  8. PRAVASTATIN [Concomitant]
     Indication: BLOOD CHOLESTEROL INCREASED
  9. BONIVA [Concomitant]
     Indication: OSTEOPOROSIS
  10. RESTASIS [Concomitant]
     Indication: DRY EYE
     Dosage: PER EYE
  11. GELNIQUE [Concomitant]
     Indication: INCONTINENCE
     Dosage: SOLUTION

REACTIONS (7)
  - Cartilage injury [Not Recovered/Not Resolved]
  - Arthralgia [Not Recovered/Not Resolved]
  - Joint swelling [Not Recovered/Not Resolved]
  - Arthralgia [Not Recovered/Not Resolved]
  - Pain in extremity [Not Recovered/Not Resolved]
  - Drug ineffective [Not Recovered/Not Resolved]
  - Arthritis [Not Recovered/Not Resolved]
